FAERS Safety Report 8111506-6 (Version None)
Quarter: 2012Q1

REPORT INFORMATION
  Report Type: 
  Country: None (occurrence: None)
  Receive Date: 20120202
  Receipt Date: 20120202
  Transmission Date: 20120608
  Serious: Yes (Other)
  Sender: FDA-Public Use
  Company Number: None

PATIENT
  Sex: Female
  Weight: 109.1 kg

DRUGS (1)
  1. LEVOFLOXACIN [Suspect]
     Indication: ANTIBIOTIC PROPHYLAXIS
     Dosage: 1 PRIOR TO DENTAL WORK TWICE ORAL ONE BEFORE AND ONE NEXT DAY
     Route: 048
     Dates: start: 20110711

REACTIONS (1)
  - RASH GENERALISED [None]
